FAERS Safety Report 20433768 (Version 1)
Quarter: 2022Q1

REPORT INFORMATION
  Report Type: Spontaneous
  Country: IT (occurrence: IT)
  Receive Date: 20220205
  Receipt Date: 20220205
  Transmission Date: 20220424
  Serious: Yes (Hospitalization)
  Sender: FDA-Public Use
  Company Number: None

PATIENT
  Age: 91 Year
  Sex: Male

DRUGS (6)
  1. ENOXAPARIN SODIUM [Suspect]
     Active Substance: ENOXAPARIN SODIUM
     Dosage: 4000 KIU, QD
     Route: 058
     Dates: start: 20210101, end: 20211221
  2. BENSERAZIDE HYDROCHLORIDE\LEVODOPA [Concomitant]
     Active Substance: BENSERAZIDE HYDROCHLORIDE\LEVODOPA
  3. SERTRALINE [Concomitant]
     Active Substance: SERTRALINE HYDROCHLORIDE
  4. NIFEREX [FERROUS GLYCINE SULFATE] [Concomitant]
     Dosage: CAPSULE RIGID GASTRORESISTENT
  5. NORVASC [Concomitant]
     Active Substance: AMLODIPINE BESYLATE
  6. HALCION [Concomitant]
     Active Substance: TRIAZOLAM

REACTIONS (1)
  - Haematuria [Not Recovered/Not Resolved]

NARRATIVE: CASE EVENT DATE: 20211221
